FAERS Safety Report 6212282-4 (Version None)
Quarter: 2009Q2

REPORT INFORMATION
  Report Type: 
  Country: None (occurrence: None)
  Receive Date: 20090529
  Receipt Date: 20090521
  Transmission Date: 20091009
  Serious: Yes (Other)
  Sender: FDA-Public Use
  Company Number: CHPA2009US12150

PATIENT
  Age: 27 Year
  Sex: Female

DRUGS (1)
  1. NCH [Suspect]
     Indication: MIGRAINE
     Dosage: 2 DF, BID, ORAL
     Route: 048
     Dates: start: 20090519, end: 20090519

REACTIONS (5)
  - ANORECTAL DISCOMFORT [None]
  - DRUG EXPOSURE DURING PREGNANCY [None]
  - FLATULENCE [None]
  - OVERDOSE [None]
  - VAGINAL HAEMORRHAGE [None]
